FAERS Safety Report 12055867 (Version 1)
Quarter: 2016Q1

REPORT INFORMATION
  Report Type: Spontaneous
  Country: US (occurrence: US)
  Receive Date: 20160209
  Receipt Date: 20160209
  Transmission Date: 20160526
  Serious: No
  Sender: FDA-Public Use
  Company Number: US-BAYER-2016-020411

PATIENT
  Age: 38 Year
  Sex: Female
  Weight: 74.83 kg

DRUGS (2)
  1. CLARITIN-D 12 HOUR [Suspect]
     Active Substance: LORATADINE\PSEUDOEPHEDRINE SULFATE
     Indication: NASOPHARYNGITIS
     Dosage: UNK
  2. CLARITIN-D 12 HOUR [Suspect]
     Active Substance: LORATADINE\PSEUDOEPHEDRINE SULFATE
     Indication: NASOPHARYNGITIS
     Dosage: 3 DF, ONCE
     Dates: start: 20160201, end: 20160201

REACTIONS (2)
  - Incorrect drug administration rate [None]
  - Asthenopia [None]

NARRATIVE: CASE EVENT DATE: 20160201
